FAERS Safety Report 6491781-4 (Version None)
Quarter: 2009Q4

REPORT INFORMATION
  Report Type: 
  Country: None (occurrence: None)
  Receive Date: 20091210
  Receipt Date: 20091204
  Transmission Date: 20100525
  Serious: Yes (Other)
  Sender: FDA-Public Use
  Company Number: TPA2009A04062

PATIENT
  Sex: Female

DRUGS (4)
  1. ACTOS [Suspect]
     Indication: DIABETES MELLITUS
     Dosage: ORAL
     Route: 048
  2. ANTIDIABETIC MEDICINE(ORAL ANTIDIABETICS) [Suspect]
     Indication: DIABETES MELLITUS
     Dosage: ORAL
     Route: 048
  3. CHEMOTHERAPY(OTHER CHEMOTHERAPEUTICS) [Suspect]
     Indication: LYMPHOMA
  4. PREDNISOLONE [Suspect]
     Dosage: ORAL
     Route: 048

REACTIONS (2)
  - BLOOD GLUCOSE INCREASED [None]
  - LYMPHOMA [None]
